FAERS Safety Report 16732429 (Version 1)
Quarter: 2019Q3

REPORT INFORMATION
  Report Type: Spontaneous
  Country: US (occurrence: US)
  Receive Date: 20190822
  Receipt Date: 20190822
  Transmission Date: 20191005
  Serious: No
  Sender: FDA-Public Use
  Company Number: US-JNJFOC-20190822511

PATIENT
  Age: 4 Month
  Sex: Female
  Weight: 6.81 kg

DRUGS (1)
  1. INFANTS TYLENOL [Suspect]
     Active Substance: ACETAMINOPHEN
     Indication: ANALGESIC THERAPY
     Dosage: 1.25 ML ONCE
     Route: 048
     Dates: start: 20190815

REACTIONS (1)
  - Vomiting projectile [Recovered/Resolved]

NARRATIVE: CASE EVENT DATE: 20190815
